FAERS Safety Report 8586811-X (Version None)
Quarter: 2012Q3

REPORT INFORMATION
  Report Type: 
  Country: None (occurrence: None)
  Receive Date: 20120810
  Receipt Date: 20120803
  Transmission Date: 20120928
  Serious: Yes (Other)
  Sender: FDA-Public Use
  Company Number: AU-ABBOTT-12P-008-0908469-00

PATIENT

DRUGS (2)
  1. HUMIRA [Suspect]
     Indication: SARCOIDOSIS
  2. TOPICAL CORTICOSTEROID ONLY AT PRESENT [Concomitant]
     Indication: PRODUCT USED FOR UNKNOWN INDICATION

REACTIONS (3)
  - INFLAMMATION [None]
  - CATARACT [None]
  - THERAPEUTIC RESPONSE UNEXPECTED [None]
